FAERS Safety Report 17952156 (Version 2)
Quarter: 2020Q3

REPORT INFORMATION
  Report Type: Spontaneous
  Country: FI (occurrence: FI)
  Receive Date: 20200626
  Receipt Date: 20200708
  Transmission Date: 20201103
  Serious: No
  Sender: FDA-Public Use
  Company Number: FI-TOLMAR, INC.-20FI021758

PATIENT
  Sex: Male

DRUGS (2)
  1. ELIGARD [Suspect]
     Active Substance: LEUPROLIDE ACETATE
     Dosage: 45 MG, UNKNOWN FREQUENCY
     Route: 058
     Dates: start: 201712
  2. ELIGARD [Suspect]
     Active Substance: LEUPROLIDE ACETATE
     Indication: PROSTATE CANCER
     Dosage: 45 MG, UNKNOWN FREQUENCY
     Route: 058

REACTIONS (3)
  - Intercepted product preparation error [None]
  - Syringe issue [None]
  - Device leakage [None]
